FAERS Safety Report 4430178-5 (Version None)
Quarter: 2004Q3

REPORT INFORMATION
  Report Type: 
  Country: None (occurrence: None)
  Receive Date: 20040817
  Receipt Date: 20040802
  Transmission Date: 20050211
  Serious: Yes (Hospitalization)
  Sender: FDA-Public Use
  Company Number: 2004AP03992

PATIENT
  Age: 17 Year
  Sex: Female

DRUGS (11)
  1. SEROQUEL [Suspect]
     Indication: MENTAL DISORDER
  2. ABILIFY [Suspect]
     Indication: MENTAL DISORDER
     Dosage: 15 MG DAILY PO
     Route: 048
     Dates: start: 20031126, end: 20031205
  3. DIAZEPAM [Suspect]
     Indication: MENTAL DISORDER
     Dosage: 20 MG DAILY PO
     Route: 048
  4. DROPERIDOL [Suspect]
     Indication: MENTAL DISORDER
     Dosage: 5 MG PRN IM
     Route: 030
  5. LAMICTAL [Suspect]
     Dosage: 137 MG DAILY PO
     Route: 048
  6. MIDAZOLAM HCL [Suspect]
     Indication: MENTAL DISORDER
     Dosage: 10 MG PRN IM
     Route: 030
  7. VALPROIC ACID [Suspect]
     Dosage: 1000 MG DAILY PO
     Route: 048
  8. LEVLEN 28 [Concomitant]
  9. FERRO-GRADUMET     /AUS/ [Concomitant]
  10. NICABATE [Concomitant]
  11. MYLANTA [Concomitant]

REACTIONS (2)
  - DEPRESSED LEVEL OF CONSCIOUSNESS [None]
  - DRUG INTERACTION [None]
